FAERS Safety Report 25206002 (Version 1)
Quarter: 2025Q2

REPORT INFORMATION
  Report Type: Report from Study
  Country: CA (occurrence: CA)
  Receive Date: 20250417
  Receipt Date: 20250417
  Transmission Date: 20250716
  Serious: Yes (Other)
  Sender: TEVA
  Company Number: CA-TEVA-VS-3284142

PATIENT
  Age: 61 Year
  Sex: Male
  Weight: 74 kg

DRUGS (6)
  1. METHOTREXATE [Suspect]
     Active Substance: METHOTREXATE
     Indication: Product used for unknown indication
     Route: 065
  2. DESOXIMETASONE [Suspect]
     Active Substance: DESOXIMETASONE
     Indication: Product used for unknown indication
     Route: 065
  3. RENFLEXIS [Suspect]
     Active Substance: INFLIXIMAB-ABDA
     Indication: Psoriatic arthropathy
     Dosage: RENFLEXIS SINGLE USE VIAL
     Route: 042
  4. RENFLEXIS [Suspect]
     Active Substance: INFLIXIMAB-ABDA
     Indication: Psoriatic arthropathy
     Dosage: DOSE FORM: POWDER FOR SOLUTION INTRAVENOUS, RENFLEXIS SINGLE USE VIAL
     Route: 042
  5. RENFLEXIS [Suspect]
     Active Substance: INFLIXIMAB-ABDA
     Indication: Psoriatic arthropathy
     Dosage: RENFLEXIS SINGLE USE VIAL
     Route: 042
  6. RENFLEXIS [Suspect]
     Active Substance: INFLIXIMAB-ABDA
     Indication: Psoriatic arthropathy
     Dosage: RENFLEXIS SINGLE USE VIAL
     Route: 042

REACTIONS (6)
  - Arthralgia [Not Recovered/Not Resolved]
  - Musculoskeletal stiffness [Not Recovered/Not Resolved]
  - Off label use [Not Recovered/Not Resolved]
  - Drug ineffective [Not Recovered/Not Resolved]
  - Blood pressure increased [Not Recovered/Not Resolved]
  - Tooth loss [Not Recovered/Not Resolved]
